FAERS Safety Report 24107334 (Version 1)
Quarter: 2024Q3

REPORT INFORMATION
  Report Type: Spontaneous
  Country: CN (occurrence: CN)
  Receive Date: 20240718
  Receipt Date: 20240718
  Transmission Date: 20241016
  Serious: Yes (Other)
  Sender: BEIGENE
  Company Number: CN-BEIGENE-BGN-2024-010844

PATIENT

DRUGS (4)
  1. TISLELIZUMAB [Suspect]
     Active Substance: TISLELIZUMAB
     Indication: Lung neoplasm malignant
     Dosage: 200 MILLIGRAM
     Route: 041
     Dates: start: 20240528
  2. TISLELIZUMAB [Suspect]
     Active Substance: TISLELIZUMAB
     Dosage: 200 MILLIGRAM
     Route: 041
     Dates: start: 20240630
  3. ENDOSTATIN [Concomitant]
     Active Substance: ENDOSTATIN
     Indication: Lung neoplasm malignant
     Dosage: UNK
     Dates: start: 20240528
  4. ENDOSTATIN [Concomitant]
     Active Substance: ENDOSTATIN
     Dosage: UNK
     Dates: start: 20240630

REACTIONS (5)
  - Lichen planus [Recovering/Resolving]
  - Discomfort [Unknown]
  - Dizziness [Unknown]
  - Rash pruritic [Recovering/Resolving]
  - Erythema [Unknown]

NARRATIVE: CASE EVENT DATE: 20240628
